FAERS Safety Report 18370876 (Version 3)
Quarter: 2020Q4

REPORT INFORMATION
  Report Type: Report from Study
  Country: IE (occurrence: IE)
  Receive Date: 20201012
  Receipt Date: 20201026
  Transmission Date: 20210114
  Serious: Yes (Other)
  Sender: FDA-Public Use
  Company Number: IE-EMD SERONO-9189755

PATIENT
  Sex: Female

DRUGS (2)
  1. MAVENCLAD [Suspect]
     Active Substance: CLADRIBINE
     Dosage: YEAR ONE WEEK TWO THERAPY: TOOK TWO TABLETS ON DAYS 1-2 AND ONE TABLET ON DAYS 3-5
     Route: 048
     Dates: start: 20191111
  2. MAVENCLAD [Suspect]
     Active Substance: CLADRIBINE
     Indication: RELAPSING-REMITTING MULTIPLE SCLEROSIS
     Dosage: YEAR ONE WEEK ONE THERAPY: TOOK TWO TABLETS ON DAYS 1-2 AND ONE TABLET ON DAYS 3-5
     Route: 048
     Dates: start: 20191007

REACTIONS (2)
  - Kidney infection [Recovered/Resolved]
  - Urinary tract infection [Recovered/Resolved]
